FAERS Safety Report 16115954 (Version 1)
Quarter: 2019Q1

REPORT INFORMATION
  Report Type: Report from Study
  Country: FR (occurrence: FR)
  Receive Date: 20190326
  Receipt Date: 20190326
  Transmission Date: 20190418
  Serious: Yes (Hospitalization)
  Sender: FDA-Public Use
  Company Number: FR-ROCHE-1846238

PATIENT
  Age: 90 Year
  Sex: Female
  Weight: 42 kg

DRUGS (14)
  1. PREDNISONE. [Suspect]
     Active Substance: PREDNISONE
     Dosage: DAY1 TO DAY 5 CYCLE 6
     Route: 048
     Dates: start: 20160609, end: 20161027
  2. DOXORUBICINE [Suspect]
     Active Substance: DOXORUBICIN
     Route: 042
     Dates: end: 20161027
  3. LENALIDOMIDE [Suspect]
     Active Substance: LENALIDOMIDE
     Route: 048
     Dates: start: 20160609, end: 20160622
  4. CYCLOPHOSPHAMIDE. [Suspect]
     Active Substance: CYCLOPHOSPHAMIDE
     Route: 042
     Dates: end: 20161027
  5. RITUXIMAB. [Suspect]
     Active Substance: RITUXIMAB
     Indication: DIFFUSE LARGE B-CELL LYMPHOMA
     Dosage: LAST DOSE ADMINISTERED: 07/OCT/2016 CYCLE 6 DAY 1
     Route: 058
     Dates: start: 20160704
  6. LENALIDOMIDE [Suspect]
     Active Substance: LENALIDOMIDE
     Dosage: RESTART CYCLE 2
     Route: 048
     Dates: start: 20160704
  7. VINCRISTINE [Suspect]
     Active Substance: VINCRISTINE
     Indication: DIFFUSE LARGE B-CELL LYMPHOMA
     Dosage: AS PRE PHASE TREATMENT
     Route: 042
     Dates: start: 20160527, end: 20160531
  8. VINCRISTINE [Suspect]
     Active Substance: VINCRISTINE
     Dosage: DAY 1 CYCLE 6
     Route: 042
     Dates: start: 20160609, end: 20161027
  9. RITUXIMAB. [Suspect]
     Active Substance: RITUXIMAB
     Indication: DIFFUSE LARGE B-CELL LYMPHOMA
     Dosage: CYCLE 1;
     Route: 042
     Dates: start: 20160603, end: 20160704
  10. LENALIDOMIDE [Suspect]
     Active Substance: LENALIDOMIDE
     Indication: DIFFUSE LARGE B-CELL LYMPHOMA
     Route: 048
     Dates: start: 20160603, end: 20161019
  11. CYCLOPHOSPHAMIDE. [Suspect]
     Active Substance: CYCLOPHOSPHAMIDE
     Indication: DIFFUSE LARGE B-CELL LYMPHOMA
     Dosage: CYCLE 6, DAY 1
     Route: 042
     Dates: start: 20160609, end: 20160613
  12. DOXORUBICINE [Suspect]
     Active Substance: DOXORUBICIN
     Indication: DIFFUSE LARGE B-CELL LYMPHOMA
     Dosage: CYCLE 6, DAY 1
     Route: 042
     Dates: start: 20160609, end: 20160613
  13. RITUXIMAB. [Suspect]
     Active Substance: RITUXIMAB
     Dosage: DATE OF LAST DOSE ADMINISTERED BEFORE SAE: 09/JUN/2016
     Route: 042
     Dates: start: 20160609, end: 20160609
  14. PREDNISONE. [Suspect]
     Active Substance: PREDNISONE
     Indication: DIFFUSE LARGE B-CELL LYMPHOMA
     Dosage: AS PRE PHASE TREATMENT
     Route: 048
     Dates: start: 20160527, end: 20160531

REACTIONS (4)
  - Chondrocalcinosis [Recovered/Resolved with Sequelae]
  - Neutrophil count decreased [Recovered/Resolved]
  - Neutrophil count decreased [Recovered/Resolved]
  - Fall [Unknown]

NARRATIVE: CASE EVENT DATE: 20160622
